FAERS Safety Report 7086918-2 (Version None)
Quarter: 2010Q4

REPORT INFORMATION
  Report Type: 
  Country: None (occurrence: None)
  Receive Date: 20101106
  Receipt Date: 20101026
  Transmission Date: 20110411
  Serious: Yes (Other)
  Sender: FDA-Public Use
  Company Number: HQWYE223812AUG04

PATIENT
  Sex: Female

DRUGS (10)
  1. PREMPRO [Suspect]
  2. PROVERA [Suspect]
  3. OGEN [Suspect]
  4. ESTRACE [Suspect]
  5. MEDROXYPROGESTERONE [Suspect]
  6. CLIMARA [Suspect]
  7. ESTROGENS [Suspect]
  8. PREMARIN [Suspect]
  9. PREMARIN [Suspect]
  10. ESTRADERM [Suspect]

REACTIONS (1)
  - BREAST CANCER [None]
